FAERS Safety Report 25835461 (Version 2)
Quarter: 2025Q3

REPORT INFORMATION
  Report Type: Spontaneous
  Country: US (occurrence: US)
  Receive Date: 20250923
  Receipt Date: 20250929
  Transmission Date: 20251021
  Serious: Yes (Other)
  Sender: SANOFI AVENTIS
  Company Number: US-SANOFI-02654934

PATIENT
  Age: 66 Year
  Sex: Male

DRUGS (1)
  1. TOUJEO MAX [Suspect]
     Active Substance: INSULIN GLARGINE
     Indication: Type 1 diabetes mellitus
     Dosage: 60 IU, QD

REACTIONS (2)
  - Renal failure [Unknown]
  - Injury associated with device [Unknown]

NARRATIVE: CASE EVENT DATE: 20250914
